FAERS Safety Report 7377471-4 (Version None)
Quarter: 2011Q1

REPORT INFORMATION
  Report Type: 
  Country: None (occurrence: None)
  Receive Date: 20110328
  Receipt Date: 20110314
  Transmission Date: 20110831
  Serious: Yes (Other)
  Sender: FDA-Public Use
  Company Number: PHEH2006US15189

PATIENT
  Sex: Male

DRUGS (5)
  1. PRILOSEC [Concomitant]
  2. GLEEVEC [Concomitant]
  3. ZOMETA [Suspect]
     Dosage: UNK, UNK
  4. VIOXX [Concomitant]
  5. CHEMOTHERAPEUTICS NOS [Suspect]
     Dosage: UNK, UNK

REACTIONS (33)
  - BONE NEOPLASM MALIGNANT [None]
  - IMPACTED FRACTURE [None]
  - TOOTH DISORDER [None]
  - CLAVICLE FRACTURE [None]
  - FLUSHING [None]
  - SPLENOMEGALY [None]
  - NEPHROLITHIASIS [None]
  - MUSCLE FATIGUE [None]
  - NAUSEA [None]
  - MICROCYTOSIS [None]
  - NEURITIS [None]
  - ARTHRITIS [None]
  - NECK PAIN [None]
  - BONE DISORDER [None]
  - CARDIOMEGALY [None]
  - MIGRAINE [None]
  - FALL [None]
  - GENERAL PHYSICAL HEALTH DETERIORATION [None]
  - UPPER RESPIRATORY TRACT INFECTION [None]
  - WRIST FRACTURE [None]
  - OSTEONECROSIS OF JAW [None]
  - DECREASED INTEREST [None]
  - EXTREMITY NECROSIS [None]
  - BACK PAIN [None]
  - DIARRHOEA [None]
  - DEHYDRATION [None]
  - INSOMNIA [None]
  - ACUTE CORONARY SYNDROME [None]
  - HEPATITIS C [None]
  - DEPRESSION [None]
  - PAIN [None]
  - ANXIETY [None]
  - VOMITING [None]
